FAERS Safety Report 9026945 (Version 1)
Quarter: 2013Q1

REPORT INFORMATION
  Report Type: Spontaneous
  Country: US (occurrence: US)
  Receive Date: 20130123
  Receipt Date: 20130123
  Transmission Date: 20140127
  Serious: No
  Sender: FDA-Public Use
  Company Number: US-PFIZER INC-2013024459

PATIENT
  Age: 77 Year
  Sex: Male
  Weight: 81.63 kg

DRUGS (2)
  1. LYRICA [Suspect]
     Indication: NEURALGIA
     Dosage: 100 MG (2 CAPSULES OF 50 MG), 3X/DAY
     Route: 048
     Dates: start: 20121201
  2. REVLIMID [Concomitant]
     Dosage: UNK

REACTIONS (4)
  - Cyst [Not Recovered/Not Resolved]
  - Oral herpes [Not Recovered/Not Resolved]
  - Furuncle [Not Recovered/Not Resolved]
  - Milia [Recovered/Resolved]
